FAERS Safety Report 11776767 (Version 1)
Quarter: 2015Q4

REPORT INFORMATION
  Report Type: Spontaneous
  Country: US (occurrence: None)
  Receive Date: 20151123
  Receipt Date: 20151123
  Transmission Date: 20160304
  Serious: No
  Sender: FDA-Public Use
  Company Number: None

PATIENT
  Age: 60 Year
  Sex: Male
  Weight: 63.5 kg

DRUGS (3)
  1. WARFIN [Concomitant]
     Active Substance: WARFARIN
  2. LOSARTAN POTASSIUM 50MG VIVIMED LABS/VIRTUS PHARMACEUTICAL [Suspect]
     Active Substance: LOSARTAN POTASSIUM
     Indication: BLOOD PRESSURE ABNORMAL
     Route: 048
     Dates: start: 20151031, end: 20151119
  3. CARDIOVERSION [Concomitant]

REACTIONS (3)
  - Tinnitus [None]
  - Oropharyngeal pain [None]
  - Headache [None]

NARRATIVE: CASE EVENT DATE: 20151031
